FAERS Safety Report 6696431-X (Version None)
Quarter: 2010Q2

REPORT INFORMATION
  Report Type: 
  Country: None (occurrence: None)
  Receive Date: 20100426
  Receipt Date: 20100416
  Transmission Date: 20101027
  Serious: Yes (Other)
  Sender: FDA-Public Use
  Company Number: US-AMGEN-QUU391490

PATIENT
  Sex: Male
  Weight: 69.4 kg

DRUGS (23)
  1. NPLATE [Suspect]
     Indication: IDIOPATHIC THROMBOCYTOPENIC PURPURA
     Route: 058
     Dates: start: 20081212, end: 20090625
  2. GAMMAGARD [Concomitant]
  3. CORTICOSTEROIDS [Concomitant]
     Dates: start: 20081004
  4. IMMU-G [Concomitant]
     Dates: start: 20081008
  5. UNSPECIFIED MEDICATION [Concomitant]
  6. SODIUM CHLORIDE [Concomitant]
  7. LASIX [Concomitant]
  8. LORTAB [Concomitant]
  9. ACYCLOVIR [Concomitant]
  10. SINGULAIR [Concomitant]
  11. ADVAIR DISKUS 100/50 [Concomitant]
     Route: 055
  12. COMBIVENT [Concomitant]
     Route: 055
  13. FLONASE [Concomitant]
  14. ASTELIN [Concomitant]
  15. SPIRIVA [Concomitant]
  16. XOPENEX [Concomitant]
     Route: 055
  17. DETROL [Concomitant]
  18. COMPAZINE [Concomitant]
  19. POTASSIUM [Concomitant]
  20. RITUXIMAB [Concomitant]
  21. CYCLOPHOSPHAMIDE [Concomitant]
  22. VINCRISTINE [Concomitant]
  23. PREDNISOLONE [Concomitant]

REACTIONS (6)
  - CEREBROVASCULAR ACCIDENT [None]
  - CHILLS [None]
  - DIZZINESS [None]
  - HEADACHE [None]
  - MENINGITIS [None]
  - MUCOSAL INFLAMMATION [None]
